FAERS Safety Report 7430923-0 (Version None)
Quarter: 2011Q2

REPORT INFORMATION
  Report Type: 
  Country: None (occurrence: None)
  Receive Date: 20110421
  Receipt Date: 20110418
  Transmission Date: 20111010
  Serious: Yes (Hospitalization, Other)
  Sender: FDA-Public Use
  Company Number: JP-PFIZER INC-2011080824

PATIENT
  Age: 59 Year
  Sex: Male

DRUGS (7)
  1. RETICOLAN [Concomitant]
     Indication: HYPOAESTHESIA
     Dosage: 1500 UG, A DAY
     Route: 048
     Dates: start: 20110101, end: 20110407
  2. REBAMIPIDE [Concomitant]
     Indication: PROPHYLAXIS AGAINST GASTROINTESTINAL ULCER
     Dosage: 300 MG, A DAY
     Route: 048
     Dates: start: 20110101, end: 20110407
  3. LANSOPRAZOLE [Concomitant]
     Indication: PROPHYLAXIS AGAINST GASTROINTESTINAL ULCER
     Dosage: 15 MG, A DAY
     Route: 048
     Dates: start: 20110101, end: 20110407
  4. LYRICA [Suspect]
     Indication: HYPOAESTHESIA
     Dosage: 100MG DAILY
     Route: 048
     Dates: start: 20110406
  5. LYRICA [Suspect]
     Dosage: 25 MG, 2X/DAY
  6. NEUROTROPIN [Suspect]
     Indication: HYPOAESTHESIA
     Dosage: 12 UNITS A DAY
     Route: 048
     Dates: start: 20110101, end: 20110407
  7. OPAPROSMON [Suspect]
     Indication: HYPOAESTHESIA
     Dosage: 15 UG, A DAY
     Route: 048
     Dates: start: 20110101, end: 20110407

REACTIONS (3)
  - DUODENAL ULCER HAEMORRHAGE [None]
  - DUODENAL ULCER [None]
  - VOMITING [None]
